FAERS Safety Report 21968227 (Version 3)
Quarter: 2023Q1

REPORT INFORMATION
  Report Type: Spontaneous
  Country: JP (occurrence: JP)
  Receive Date: 20230208
  Receipt Date: 20230303
  Transmission Date: 20230418
  Serious: Yes (Disabling, Other)
  Sender: FDA-Public Use
  Company Number: JP-ORGANON-O2302JPN000666

PATIENT
  Age: 85 Year
  Sex: Female

DRUGS (8)
  1. BONALON [Suspect]
     Active Substance: ALENDRONATE SODIUM
     Indication: Osteoporosis
     Dosage: 35 MILLIGRAM PER WEEK
     Route: 048
     Dates: start: 202211, end: 20221214
  2. ACTONEL [Suspect]
     Active Substance: RISEDRONATE SODIUM
     Indication: Osteoporosis
     Dosage: 17.5 MILLIGRAM PER WEEK
     Route: 048
     Dates: start: 20221221, end: 20221228
  3. LOXOPROFEN SODIUM DIHYDRATE [Concomitant]
     Active Substance: LOXOPROFEN SODIUM DIHYDRATE
     Indication: Pain
     Dosage: 60 MG PER DAY, AS NEEDED (ONLY WHEN PAIN IS PRESENT)
     Route: 048
     Dates: start: 20221130
  4. CALONAL [Concomitant]
     Active Substance: ACETAMINOPHEN
     Indication: Pain
     Dosage: 400 MG THRICE DAILY, AS NEEDED (ONLY WHEN PAIN IS PRESENT)
     Route: 048
     Dates: start: 202211
  5. ELDECALCITOL [Concomitant]
     Active Substance: ELDECALCITOL
     Indication: Osteoporosis
     Dosage: 0.75 MICROGRAM/DAY
     Route: 048
     Dates: start: 202211
  6. KETOPROFEN [Concomitant]
     Active Substance: KETOPROFEN
     Indication: Post-traumatic pain
     Dosage: 1 DOSAGE FORM/DAY
     Route: 061
     Dates: start: 202211
  7. REBAMIPIDE [Concomitant]
     Active Substance: REBAMIPIDE
     Indication: Prophylaxis against gastrointestinal ulcer
     Dosage: 100 MILLIGRAM/DAY
     Route: 048
     Dates: start: 20221130
  8. WHITE PETROLATUM [Concomitant]
     Active Substance: PETROLATUM
     Indication: Dry skin
     Dosage: 5 GRAM/DAY
     Route: 061
     Dates: start: 202211

REACTIONS (1)
  - Urinary retention [Not Recovered/Not Resolved]

NARRATIVE: CASE EVENT DATE: 20221205
